FAERS Safety Report 4783509-0 (Version None)
Quarter: 2005Q3

REPORT INFORMATION
  Report Type: 
  Country: None (occurrence: None)
  Receive Date: 20050929
  Receipt Date: 20050627
  Transmission Date: 20060218
  Serious: Yes (Hospitalization)
  Sender: FDA-Public Use
  Company Number: PHEH2005US07273

PATIENT
  Age: 30 Year
  Sex: Female
  Weight: 71 kg

DRUGS (2)
  1. TRILEPTAL [Suspect]
     Dosage: 1050 MG, QD
  2. PRENATAL VITAMINS [Concomitant]
     Dosage: ONE QD

REACTIONS (3)
  - ALPHA 1 FOETOPROTEIN ABNORMAL [None]
  - CAESAREAN SECTION [None]
  - DRUG EXPOSURE DURING PREGNANCY [None]
